FAERS Safety Report 16672316 (Version 1)
Quarter: 2019Q3

REPORT INFORMATION
  Report Type: Spontaneous
  Country: US (occurrence: US)
  Receive Date: 20190806
  Receipt Date: 20190806
  Transmission Date: 20191004
  Serious: Yes (Other)
  Sender: FDA-Public Use
  Company Number: US-BEH-2019104982

PATIENT
  Age: 48 Year
  Sex: Female

DRUGS (1)
  1. PRIVIGEN [Suspect]
     Active Substance: HUMAN IMMUNOGLOBULIN G
     Indication: SYSTEMIC LUPUS ERYTHEMATOSUS
     Dosage: 10MG/100ML , QMT FOR SIX MONTHS
     Route: 042
     Dates: start: 20190528, end: 20190625

REACTIONS (11)
  - Headache [Unknown]
  - Vomiting [Unknown]
  - Headache [Unknown]
  - Nausea [Unknown]
  - No adverse event [Unknown]
  - Vomiting [Unknown]
  - Vomiting [Unknown]
  - Headache [Unknown]
  - Product use in unapproved indication [Unknown]
  - Nausea [Unknown]
  - Nausea [Unknown]

NARRATIVE: CASE EVENT DATE: 20190528
